FAERS Safety Report 12499214 (Version 2)
Quarter: 2016Q3

REPORT INFORMATION
  Report Type: Report from Study
  Country: SV (occurrence: SV)
  Receive Date: 20160627
  Receipt Date: 20160701
  Transmission Date: 20161109
  Serious: Yes (Death, Other)
  Sender: FDA-Public Use
  Company Number: PHHY2016SV086922

PATIENT
  Age: 64 Year
  Sex: Male
  Weight: 90.7 kg

DRUGS (1)
  1. GLIVEC [Suspect]
     Active Substance: IMATINIB MESYLATE
     Indication: GASTROINTESTINAL STROMAL TUMOUR
     Dosage: 800 MG, UNK
     Route: 065

REACTIONS (7)
  - Malignant neoplasm progression [Unknown]
  - Death [Fatal]
  - Gastrointestinal stromal tumour [Unknown]
  - Metastases to liver [Unknown]
  - Haemoglobin decreased [Unknown]
  - Aspartate aminotransferase increased [Unknown]
  - Malaise [Unknown]

NARRATIVE: CASE EVENT DATE: 201601
